FAERS Safety Report 16808895 (Version 4)
Quarter: 2019Q4

REPORT INFORMATION
  Report Type: Spontaneous
  Country: CN (occurrence: CN)
  Receive Date: 20190916
  Receipt Date: 20191002
  Transmission Date: 20200122
  Serious: Yes (Other)
  Sender: FDA-Public Use
  Company Number: CN-TERSERA THERAPEUTICS LLC-2019TRS001916

PATIENT

DRUGS (1)
  1. ZOLADEX [Suspect]
     Active Substance: GOSERELIN ACETATE
     Indication: ENDOMETRIOSIS
     Dosage: 3.6 MG, ONLY ONE NEEDLE INJECTION
     Route: 058
     Dates: start: 20190901

REACTIONS (5)
  - Choking [Recovering/Resolving]
  - Dyspnoea [Recovering/Resolving]
  - Sensation of foreign body [Recovering/Resolving]
  - Cough [Recovering/Resolving]
  - Drug hypersensitivity [Recovered/Resolved]

NARRATIVE: CASE EVENT DATE: 20190901
